FAERS Safety Report 8376161-9 (Version None)
Quarter: 2012Q2

REPORT INFORMATION
  Report Type: 
  Country: None (occurrence: None)
  Receive Date: 20120522
  Receipt Date: 20120510
  Transmission Date: 20120825
  Serious: Yes (Other)
  Sender: FDA-Public Use
  Company Number: US-SANOFI-AVENTIS-2012SA030204

PATIENT
  Age: 79 Year
  Sex: Male
  Weight: 66.4 kg

DRUGS (5)
  1. SIMVASTATIN [Concomitant]
     Dates: start: 20000101
  2. PRILOSEC [Concomitant]
     Dates: start: 20040101
  3. ALLEGRA-D 12 HOUR [Suspect]
     Dates: start: 20120318, end: 20120325
  4. ALLEGRA-D 12 HOUR [Suspect]
     Dates: start: 20120318, end: 20120325
  5. ACTONEL [Concomitant]
     Indication: OSTEOPOROSIS
     Dates: start: 20080101

REACTIONS (5)
  - INSOMNIA [None]
  - HYPERSENSITIVITY [None]
  - PSYCHOMOTOR HYPERACTIVITY [None]
  - NASAL SEPTUM DEVIATION [None]
  - AGITATION [None]
